FAERS Safety Report 8427022-8 (Version None)
Quarter: 2012Q2

REPORT INFORMATION
  Report Type: 
  Country: None (occurrence: None)
  Receive Date: 20120323
  Receipt Date: 20110426
  Transmission Date: 20120825
  Serious: Yes (Hospitalization)
  Sender: FDA-Public Use
  Company Number: 163-21880-11043455

PATIENT
  Age: 56 Year
  Sex: Female

DRUGS (2)
  1. REVLIMID [Suspect]
     Indication: MULTIPLE MYELOMA
     Dosage: 25 MG, 1 IN 1 ID, PO, 15 MG, 1 IN 1 ID, PO
     Route: 048
     Dates: start: 20110101, end: 20110101
  2. REVLIMID [Suspect]
     Indication: MULTIPLE MYELOMA
     Dosage: 25 MG, 1 IN 1 ID, PO, 15 MG, 1 IN 1 ID, PO
     Route: 048
     Dates: start: 20090602

REACTIONS (3)
  - LOCALISED INFECTION [None]
  - ASTHENIA [None]
  - FATIGUE [None]
